FAERS Safety Report 7681492-1 (Version None)
Quarter: 2011Q3

REPORT INFORMATION
  Report Type: 
  Country: None (occurrence: None)
  Receive Date: 20110812
  Receipt Date: 20110805
  Transmission Date: 20111222
  Serious: Yes (Hospitalization, Other)
  Sender: FDA-Public Use
  Company Number: PHHO2011US13502

PATIENT
  Sex: Male
  Weight: 107.6 kg

DRUGS (11)
  1. VITAMIN B-12 [Concomitant]
     Dosage: DAILY
  2. MAGNESIUM [Concomitant]
     Dosage: 400 MG, QD
  3. TYLENOL-500 [Concomitant]
  4. AFINITOR [Suspect]
     Indication: THYROID CANCER
     Dosage: 10 MG, QD
     Route: 048
     Dates: start: 20110629, end: 20110804
  5. CALCIUM CARBONATE [Concomitant]
     Dosage: 500 MG, BID
  6. LEVOTHYROXINE SODIUM [Concomitant]
     Dosage: 250-MCG M-SAT, 125MCG SUN
  7. SELENIUM [Concomitant]
     Dosage: 200 MG, BID
  8. ASCORBIC ACID [Concomitant]
     Dosage: DAILY
  9. LORAZEPAM [Concomitant]
  10. METFORMIN HCL [Concomitant]
     Dosage: 500 MG, BID
  11. PRILOSEC [Concomitant]
     Dosage: 20 MG, QD

REACTIONS (2)
  - BRONCHIAL SECRETION RETENTION [None]
  - SYNCOPE [None]
